FAERS Safety Report 6019866-7 (Version None)
Quarter: 2008Q4

REPORT INFORMATION
  Report Type: 
  Country: None (occurrence: None)
  Receive Date: 20081224
  Receipt Date: 20070828
  Transmission Date: 20090506
  Serious: Yes (Hospitalization)
  Sender: FDA-Public Use
  Company Number: JP-GENENTECH-242552

PATIENT
  Sex: Female
  Weight: 56.3 kg

DRUGS (2)
  1. BEVACIZUMAB [Suspect]
     Indication: BREAST CANCER METASTATIC
     Dosage: 10 MG/KG, DAYS 1+15
     Route: 042
     Dates: start: 20070515
  2. PACLITAXEL [Suspect]
     Indication: BREAST CANCER METASTATIC
     Dosage: 90 MG/M2, DAYS1,8,15
     Route: 042
     Dates: start: 20070515

REACTIONS (1)
  - VERTIGO [None]
